FAERS Safety Report 17251894 (Version 1)
Quarter: 2020Q1

REPORT INFORMATION
  Report Type: Spontaneous
  Country: CN (occurrence: CN)
  Receive Date: 20200109
  Receipt Date: 20200109
  Transmission Date: 20200409
  Serious: Yes (Hospitalization)
  Sender: FDA-Public Use
  Company Number: CN-STRIDES ARCOLAB LIMITED-2020SP000115

PATIENT
  Age: 89 Year
  Sex: Female

DRUGS (2)
  1. GABAPENTIN. [Suspect]
     Active Substance: GABAPENTIN
     Dosage: INCREASED TO 300 MILLIGRAM TOTAL DISSOLVED SOLIDS
     Route: 065
  2. GABAPENTIN. [Suspect]
     Active Substance: GABAPENTIN
     Indication: ALLODYNIA
     Dosage: UNK
     Route: 065

REACTIONS (4)
  - Myoclonus [Recovered/Resolved]
  - Muscle twitching [Recovered/Resolved]
  - Toxicity to various agents [Unknown]
  - Dysphagia [Recovered/Resolved]
